FAERS Safety Report 20865094 (Version 2)
Quarter: 2022Q2

REPORT INFORMATION
  Report Type: Report from Study
  Country: CA (occurrence: CA)
  Receive Date: 20220524
  Receipt Date: 20220622
  Transmission Date: 20220721
  Serious: Yes (Other)
  Sender: FDA-Public Use
  Company Number: CA-JNJFOC-20220406196

PATIENT
  Age: 41 Year
  Sex: Female

DRUGS (2)
  1. REMICADE [Suspect]
     Active Substance: INFLIXIMAB
     Indication: Colitis ulcerative
     Dosage: APPOINTMENT RESCHEDULED FROM 11-APR-2022 TO 20-APR-2022
     Route: 042
  2. REMICADE [Suspect]
     Active Substance: INFLIXIMAB
     Dosage: DOSE: ALSO GIVEN 567 MG
     Route: 042

REACTIONS (4)
  - Cytomegalovirus infection [Recovered/Resolved]
  - Colitis ulcerative [Not Recovered/Not Resolved]
  - COVID-19 [Unknown]
  - Rash erythematous [Not Recovered/Not Resolved]

NARRATIVE: CASE EVENT DATE: 20220329
